FAERS Safety Report 18978346 (Version 1)
Quarter: 2021Q1

REPORT INFORMATION
  Report Type: Spontaneous
  Country: US (occurrence: US)
  Receive Date: 20210307
  Receipt Date: 20210307
  Transmission Date: 20210420
  Serious: No
  Sender: FDA-Public Use
  Company Number: US-PERRIGO-20US018260

PATIENT
  Age: 75 Year
  Sex: Female
  Weight: 44.44 kg

DRUGS (3)
  1. DICLOFENAC SODIUM. [Suspect]
     Active Substance: DICLOFENAC SODIUM
     Indication: PAIN
     Dosage: 2 G, PRN
     Route: 061
     Dates: start: 20200724, end: 20200731
  2. FLUTICORT [Concomitant]
     Active Substance: FLUTICASONE PROPIONATE
     Indication: HYPOTENSION
     Dosage: UNKNOWN, UNKNOWN
     Route: 065
  3. MORPHINE [Concomitant]
     Active Substance: MORPHINE
     Indication: FIBROMYALGIA
     Dosage: UNKNOWN, UNKNOWN
     Route: 065

REACTIONS (3)
  - Diarrhoea [Recovered/Resolved]
  - Product administered at inappropriate site [Recovered/Resolved]
  - Headache [Recovered/Resolved]

NARRATIVE: CASE EVENT DATE: 202007
